FAERS Safety Report 4316169-3 (Version None)
Quarter: 2004Q1

REPORT INFORMATION
  Report Type: 
  Country: None (occurrence: None)
  Receive Date: 20040312
  Receipt Date: 20040305
  Transmission Date: 20041129
  Serious: Yes (Other)
  Sender: FDA-Public Use
  Company Number: PHNU2004DE01148

PATIENT
  Age: 16 Year
  Sex: Male

DRUGS (1)
  1. VOLTAREN [Suspect]

REACTIONS (3)
  - DIPLOPIA [None]
  - DIZZINESS [None]
  - HEADACHE [None]
